FAERS Safety Report 5816281-3 (Version None)
Quarter: 2008Q3

REPORT INFORMATION
  Report Type: 
  Country: None (occurrence: None)
  Receive Date: 20080717
  Receipt Date: 20080717
  Transmission Date: 20090109
  Serious: Yes (Hospitalization)
  Sender: FDA-Public Use
  Company Number: None

PATIENT
  Age: 87 Year
  Sex: Male
  Weight: 76.2043 kg

DRUGS (1)
  1. IBUPROFEN TABLETS [Suspect]
     Dosage: 400 MG QAM ORAL
     Route: 048

REACTIONS (4)
  - ASTHENIA [None]
  - GAIT DISTURBANCE [None]
  - GLOMERULONEPHRITIS RAPIDLY PROGRESSIVE [None]
  - RENAL FAILURE [None]
